FAERS Safety Report 20200211 (Version 1)
Quarter: 2021Q4

REPORT INFORMATION
  Report Type: Spontaneous
  Country: US (occurrence: US)
  Receive Date: 20211217
  Receipt Date: 20211217
  Transmission Date: 20220303
  Serious: No
  Sender: FDA-Public Use
  Company Number: US-CELGENE-USA-20211203166

PATIENT
  Sex: Male
  Weight: 99.880 kg

DRUGS (1)
  1. POMALYST [Suspect]
     Active Substance: POMALIDOMIDE
     Indication: Plasma cell myeloma
     Dosage: 4 MILLIGRAM
     Route: 048
     Dates: start: 20200721

REACTIONS (3)
  - Product quality issue [Unknown]
  - Eating disorder [Recovering/Resolving]
  - Pyrexia [Recovering/Resolving]
